FAERS Safety Report 5049518-1 (Version None)
Quarter: 2006Q3

REPORT INFORMATION
  Report Type: 
  Country: None (occurrence: None)
  Receive Date: 20060712
  Receipt Date: 20060612
  Transmission Date: 20061208
  Serious: Yes (Other)
  Sender: FDA-Public Use
  Company Number: CA-NOVOPROD-254209

PATIENT
  Sex: Female

DRUGS (4)
  1. LEVEMIR [Suspect]
     Indication: DIABETES MELLITUS
     Dosage: 32 IU, QD
     Route: 058
     Dates: start: 20060109, end: 20060328
  2. SYNTHROID [Concomitant]
  3. HUMALOG                            /00030501/ [Concomitant]
  4. ASPIRIN [Concomitant]

REACTIONS (1)
  - NO ADVERSE DRUG EFFECT [None]
